FAERS Safety Report 12488206 (Version 1)
Quarter: 2016Q2

REPORT INFORMATION
  Report Type: Spontaneous
  Country: US (occurrence: US)
  Receive Date: 20160622
  Receipt Date: 20160622
  Transmission Date: 20160815
  Serious: No
  Sender: FDA-Public Use
  Company Number: US-BEH-2016070414

PATIENT
  Sex: Female
  Weight: 70.3 kg

DRUGS (25)
  1. EPIPEN [Concomitant]
     Active Substance: EPINEPHRINE
  2. NYSTATIN. [Concomitant]
     Active Substance: NYSTATIN
  3. BUDESONIDE. [Concomitant]
     Active Substance: BUDESONIDE
  4. PROTONIX [Concomitant]
     Active Substance: PANTOPRAZOLE SODIUM
  5. MUCINEX [Concomitant]
     Active Substance: GUAIFENESIN
  6. PREDNISONE. [Concomitant]
     Active Substance: PREDNISONE
  7. SINGULAIR [Concomitant]
     Active Substance: MONTELUKAST SODIUM
  8. SUCRALFATE. [Concomitant]
     Active Substance: SUCRALFATE
  9. AVELOX [Concomitant]
     Active Substance: MOXIFLOXACIN HYDROCHLORIDE
  10. METFORMIN [Concomitant]
     Active Substance: METFORMIN HYDROCHLORIDE
  11. PULMICORT TURBUHALER [Concomitant]
     Active Substance: BUDESONIDE
  12. OXYGEN. [Concomitant]
     Active Substance: OXYGEN
  13. CIALIS [Concomitant]
     Active Substance: TADALAFIL
  14. CEFTRIAXONE. [Concomitant]
     Active Substance: CEFTRIAXONE
  15. DIPHENHYDRAMINE. [Concomitant]
     Active Substance: DIPHENHYDRAMINE
  16. CALCIUM [Concomitant]
     Active Substance: CALCIUM
  17. ALPRAZOLAM. [Concomitant]
     Active Substance: ALPRAZOLAM
  18. XOPENEX [Concomitant]
     Active Substance: LEVALBUTEROL HYDROCHLORIDE
  19. AZELASTINE [Concomitant]
     Active Substance: AZELASTINE
  20. BACTRIM [Concomitant]
     Active Substance: SULFAMETHOXAZOLE\TRIMETHOPRIM
  21. FLONASE [Concomitant]
     Active Substance: FLUTICASONE PROPIONATE
  22. IPRATROPIUM [Concomitant]
     Active Substance: IPRATROPIUM
  23. ZEMAIRA [Suspect]
     Active Substance: .ALPHA.1-PROTEINASE INHIBITOR HUMAN
     Indication: ALPHA-1 ANTI-TRYPSIN DEFICIENCY
     Dosage: 90 MG/KG, QW
     Route: 042
     Dates: start: 20090909
  24. SODIUM CHLORIDE. [Concomitant]
     Active Substance: SODIUM CHLORIDE
  25. LMX                                /00033401/ [Concomitant]

REACTIONS (1)
  - Sinusitis [Unknown]
